FAERS Safety Report 9766150 (Version 1)
Quarter: 2013Q4

REPORT INFORMATION
  Report Type: Spontaneous
  Country: US (occurrence: US)
  Receive Date: 20131217
  Receipt Date: 20131217
  Transmission Date: 20140711
  Serious: No
  Sender: FDA-Public Use
  Company Number: US-GLAXOSMITHKLINE-A1019863A

PATIENT
  Age: 63 Year
  Sex: Female

DRUGS (2)
  1. VOTRIENT [Suspect]
     Indication: PRODUCT USED FOR UNKNOWN INDICATION
     Dosage: 800MG PER DAY
     Route: 065
     Dates: start: 20130221, end: 20130429
  2. CARDIZEM [Concomitant]

REACTIONS (3)
  - Hepatic enzyme increased [Recovering/Resolving]
  - Hair colour changes [Unknown]
  - Hair texture abnormal [Unknown]
